FAERS Safety Report 12964440 (Version 1)
Quarter: 2016Q4

REPORT INFORMATION
  Report Type: Report from Study
  Country: US (occurrence: US)
  Receive Date: 20161122
  Receipt Date: 20161122
  Transmission Date: 20170207
  Serious: Yes (Hospitalization)
  Sender: FDA-Public Use
  Company Number: US-MALLINCKRODT-T201605086

PATIENT
  Sex: Male

DRUGS (1)
  1. REPOSITORY CORTICOTROPIN INJECTION [Suspect]
     Active Substance: CORTICOTROPIN
     Indication: SARCOIDOSIS
     Dosage: 80 UNITS / 1 ML, TWICE WEEKLY
     Route: 058
     Dates: start: 20160919

REACTIONS (3)
  - Oedema peripheral [Not Recovered/Not Resolved]
  - Irritability [Not Recovered/Not Resolved]
  - Meniscus injury [Not Recovered/Not Resolved]
